FAERS Safety Report 6908795-X (Version None)
Quarter: 2010Q3

REPORT INFORMATION
  Report Type: 
  Country: None (occurrence: None)
  Receive Date: 20100805
  Receipt Date: 20100729
  Transmission Date: 20110219
  Serious: Yes (Hospitalization)
  Sender: FDA-Public Use
  Company Number: A0873876A

PATIENT
  Age: 55 Year
  Sex: Male

DRUGS (1)
  1. AVANDAMET [Suspect]
     Route: 048
     Dates: start: 20020119, end: 20060425

REACTIONS (2)
  - CARDIAC FAILURE CONGESTIVE [None]
  - SILENT MYOCARDIAL INFARCTION [None]
